FAERS Safety Report 5485798-6 (Version None)
Quarter: 2007Q4

REPORT INFORMATION
  Report Type: 
  Country: None (occurrence: None)
  Receive Date: 20071015
  Receipt Date: 20071005
  Transmission Date: 20080405
  Serious: Yes (Congenital Anomaly)
  Sender: FDA-Public Use
  Company Number: US-ROCHE-523479

PATIENT
  Age: 30 Year
  Sex: Female

DRUGS (2)
  1. ACCUTANE [Suspect]
     Indication: DRUG USE FOR UNKNOWN INDICATION
     Route: 065
     Dates: end: 20000101
  2. ACCUTANE [Suspect]
     Route: 065
     Dates: end: 20040101

REACTIONS (2)
  - CONGENITAL ANOMALY [None]
  - CONGENITAL HYDROCEPHALUS [None]
